FAERS Safety Report 9835598 (Version 1)
Quarter: 2014Q1

REPORT INFORMATION
  Report Type: Report from Study
  Country: TW (occurrence: TW)
  Receive Date: 20140122
  Receipt Date: 20140122
  Transmission Date: 20141002
  Serious: No
  Sender: FDA-Public Use
  Company Number: PHHY2014TW007333

PATIENT
  Age: 28 Year
  Sex: Female

DRUGS (8)
  1. AMN107 [Suspect]
  2. AGGLUTEX [Concomitant]
     Indication: ASPIRATION BONE MARROW
     Dates: start: 20110811, end: 20110811
  3. AGGLUTEX [Concomitant]
     Dates: start: 20111201, end: 20111201
  4. SPIRONOLACTONE [Concomitant]
     Indication: EYELID OEDEMA
     Dates: start: 20120517, end: 20120525
  5. SILYMARIN [Concomitant]
     Indication: HEPATIC ENZYME INCREASED
     Dates: start: 20120419, end: 20120525
  6. SILYMARIN [Concomitant]
     Dates: start: 20120816, end: 20121011
  7. NOVAMIN [Concomitant]
     Indication: NAUSEA
     Dates: start: 20120126, end: 20120202
  8. IMATINIB MESYLATE [Concomitant]
     Indication: CHRONIC MYELOID LEUKAEMIA
     Dates: start: 20120524, end: 20120531

REACTIONS (2)
  - Upper respiratory tract infection [Unknown]
  - Cough [Unknown]
